FAERS Safety Report 7586881-1 (Version None)
Quarter: 2011Q3

REPORT INFORMATION
  Report Type: 
  Country: None (occurrence: None)
  Receive Date: 20110701
  Receipt Date: 20110629
  Transmission Date: 20111222
  Serious: Yes (Other)
  Sender: FDA-Public Use
  Company Number: US-UCBSA-036315

PATIENT
  Sex: Female

DRUGS (2)
  1. LAMICTAL [Concomitant]
  2. VIMPAT [Suspect]

REACTIONS (2)
  - DYSPNOEA [None]
  - SWOLLEN TONGUE [None]
